FAERS Safety Report 4790448-8 (Version None)
Quarter: 2005Q4

REPORT INFORMATION
  Report Type: 
  Country: None (occurrence: None)
  Receive Date: 20051005
  Receipt Date: 20050921
  Transmission Date: 20060501
  Serious: Yes (Death)
  Sender: FDA-Public Use
  Company Number: US_0504116436

PATIENT
  Age: 44 Year
  Sex: Male

DRUGS (25)
  1. ZYPREXA [Suspect]
     Indication: BIPOLAR DISORDER
     Dosage: UNK
     Route: 065
     Dates: start: 20030601
  2. FLUOXETINE [Concomitant]
  3. PAROXETINE HCL [Concomitant]
  4. SIMVASTATIN [Concomitant]
  5. CLONAZEPAM [Concomitant]
  6. NEFAZODONE HCL [Concomitant]
  7. ARIPIPRAZOLE [Concomitant]
  8. ASPARTAME W/CHOLESTYRAMINE [Concomitant]
  9. DIVALPROEX (VALPROATE SEMISODIUM) [Concomitant]
  10. HYDROXYZINE PAMOATE [Concomitant]
  11. VENLAFAXINE HCL [Concomitant]
  12. GLIPIZIDE [Concomitant]
  13. METFORMIN [Concomitant]
  14. CITALOPRAM HYDROBROMIDE [Concomitant]
  15. BISMUTH SUBSALICYLATE [Concomitant]
  16. METRONIDAZOLE [Concomitant]
  17. TETRACYCLINE [Concomitant]
  18. INDOMETHACIN [Concomitant]
  19. OMEPRAZOLE [Concomitant]
  20. NOVOLIN 70/30 [Concomitant]
  21. GEMFIBROZIL [Concomitant]
  22. LISINOPRIL [Concomitant]
  23. MULTIVITAMINS NOS (MULTIVITAMINS NOS) [Concomitant]
  24. VITAMIN B COMPLEX CAP [Concomitant]
  25. VITAMIN E [Concomitant]

REACTIONS (4)
  - DIABETES MELLITUS [None]
  - DRUG ABUSER [None]
  - HYPERLIPIDAEMIA [None]
  - WEIGHT DECREASED [None]
